FAERS Safety Report 16571625 (Version 1)
Quarter: 2019Q3

REPORT INFORMATION
  Report Type: Spontaneous
  Country: US (occurrence: US)
  Receive Date: 20190714
  Receipt Date: 20190714
  Transmission Date: 20191004
  Serious: No
  Sender: FDA-Public Use
  Company Number: None

PATIENT
  Age: 71 Year
  Sex: Female
  Weight: 47.25 kg

DRUGS (3)
  1. PROLIA [Suspect]
     Active Substance: DENOSUMAB
     Indication: OSTEOPOROSIS
     Route: 058
     Dates: start: 20160822, end: 20190225
  2. CALCIUM [Concomitant]
     Active Substance: CALCIUM
  3. CRESTOR [Concomitant]
     Active Substance: ROSUVASTATIN CALCIUM

REACTIONS (9)
  - Arthralgia [None]
  - Pain in extremity [None]
  - Mobility decreased [None]
  - Musculoskeletal pain [None]
  - Loss of personal independence in daily activities [None]
  - Depression [None]
  - Rash [None]
  - Anxiety [None]
  - Quality of life decreased [None]

NARRATIVE: CASE EVENT DATE: 20190710
